FAERS Safety Report 5282026-1 (Version None)
Quarter: 2007Q1

REPORT INFORMATION
  Report Type: 
  Country: None (occurrence: None)
  Receive Date: 20070330
  Receipt Date: 20070320
  Transmission Date: 20070707
  Serious: Yes (Other)
  Sender: FDA-Public Use
  Company Number: CA-AMGEN-US215887

PATIENT
  Sex: Female

DRUGS (3)
  1. ETANERCEPT [Suspect]
     Indication: PSORIASIS
     Route: 058
     Dates: start: 20060528, end: 20070308
  2. BETAMETHASONE VALERATE [Concomitant]
  3. ADVIL [Concomitant]

REACTIONS (1)
  - ERYTHEMA MULTIFORME [None]
